FAERS Safety Report 7103870-1 (Version None)
Quarter: 2010Q4

REPORT INFORMATION
  Report Type: 
  Country: None (occurrence: None)
  Receive Date: 20101115
  Receipt Date: 20101104
  Transmission Date: 20110411
  Serious: Yes (Other)
  Sender: FDA-Public Use
  Company Number: PHHY2009US66479

PATIENT
  Sex: Male

DRUGS (2)
  1. EXJADE [Suspect]
     Dosage: 2000 MG, QD
     Route: 048
  2. STEROIDS NOS [Concomitant]
     Dosage: UNK

REACTIONS (2)
  - BONE MARROW DISORDER [None]
  - NECROSIS [None]
